FAERS Safety Report 16866558 (Version 1)
Quarter: 2019Q3

REPORT INFORMATION
  Report Type: Spontaneous
  Country: US (occurrence: None)
  Receive Date: 20190710
  Receipt Date: 20190710
  Transmission Date: 20191005
  Serious: Yes (Other)
  Sender: FDA-Public Use
  Company Number: T19-003

PATIENT

DRUGS (2)
  1. AMOXICILLIN. [Suspect]
     Active Substance: AMOXICILLIN
  2. PRE-PEN [Suspect]
     Active Substance: BENZYLPENICILLOYL POLYLYSINE
     Indication: ALLERGY TEST
     Dosage: 6.0 X 10E-5 M TWICE SCRATCH AND INTRADERMAL

REACTIONS (9)
  - Lethargy [None]
  - Therapeutic product effect incomplete [None]
  - Pruritus [None]
  - Mental status changes [None]
  - Throat tightness [None]
  - Dysphagia [None]
  - Pharyngeal erythema [None]
  - Urticaria [None]
  - Poor peripheral circulation [None]

NARRATIVE: CASE EVENT DATE: 20190423
